FAERS Safety Report 5573913-5 (Version None)
Quarter: 2007Q4

REPORT INFORMATION
  Report Type: 
  Country: None (occurrence: None)
  Receive Date: 20071220
  Receipt Date: 20071213
  Transmission Date: 20080405
  Serious: Yes (Hospitalization)
  Sender: FDA-Public Use
  Company Number: 2007SP024918

PATIENT
  Age: 39 Year
  Sex: Male
  Weight: 64 kg

DRUGS (11)
  1. TEMOZOLOMIDE [Suspect]
     Indication: GLIOBLASTOMA MULTIFORME
     Dosage: 50 MG/M2; PO; PO, ; PO
     Route: 048
     Dates: start: 20070724, end: 20071028
  2. TEMOZOLOMIDE [Suspect]
     Indication: GLIOBLASTOMA MULTIFORME
     Dosage: 50 MG/M2; PO; PO, ; PO
     Route: 048
     Dates: start: 20071121
  3. BEVACIZUMAB [Suspect]
     Indication: GLIOBLASTOMA MULTIFORME
     Dosage: 10 MG/KG; QOW; IV, ; IV
     Route: 042
     Dates: start: 20070724, end: 20071016
  4. BEVACIZUMAB [Suspect]
     Indication: GLIOBLASTOMA MULTIFORME
     Dosage: 10 MG/KG; QOW; IV, ; IV
     Route: 042
     Dates: start: 20071121
  5. LEXAPRO [Concomitant]
  6. KEPPRA [Concomitant]
  7. DEPAKOTE ER [Concomitant]
  8. LORAZEPAM [Concomitant]
  9. GABAPENTIN [Concomitant]
  10. DECADRON [Concomitant]
  11. PRILOSEC [Concomitant]

REACTIONS (5)
  - DEHYDRATION [None]
  - DIARRHOEA [None]
  - GLIOBLASTOMA MULTIFORME [None]
  - MALIGNANT NEOPLASM PROGRESSION [None]
  - OLIGURIA [None]
